FAERS Safety Report 24201588 (Version 1)
Quarter: 2024Q3

REPORT INFORMATION
  Report Type: Spontaneous
  Country: US (occurrence: None)
  Receive Date: 20240812
  Receipt Date: 20240812
  Transmission Date: 20241016
  Serious: Yes (Death)
  Sender: Public
  Company Number: None

PATIENT
  Sex: Female

DRUGS (9)
  1. PROLIA [Suspect]
     Active Substance: DENOSUMAB
     Indication: Osteoporosis
     Dosage: FREQ: INJECT 1 SYRINGE UNDER THE SKIN (SUBCUTANEOUS INJECTION) EVERY 6 MONTHS
     Route: 058
     Dates: start: 20171116
  2. ACIDOPHILUS [Concomitant]
  3. ASPIRIN [Concomitant]
  4. METHYLCOBALAMIN [Concomitant]
     Active Substance: METHYLCOBALAMIN
  5. CALCIUM [Concomitant]
     Active Substance: CALCIUM
  6. JAKAFI [Concomitant]
     Active Substance: RUXOLITINIB
  7. MAGNESIUM [Concomitant]
     Active Substance: MAGNESIUM
  8. MULTIV WOMEN [Concomitant]
  9. VITAMIN D [Concomitant]
     Active Substance: VITAMIN D NOS

REACTIONS (1)
  - Death [None]
